APPROVED DRUG PRODUCT: ZONISAMIDE
Active Ingredient: ZONISAMIDE
Strength: 100MG
Dosage Form/Route: CAPSULE;ORAL
Application: A077876 | Product #003
Applicant: EPIC PHARMA LLC
Approved: Feb 21, 2007 | RLD: No | RS: No | Type: DISCN